FAERS Safety Report 22624343 (Version 1)
Quarter: 2023Q2

REPORT INFORMATION
  Report Type: Spontaneous
  Country: US (occurrence: None)
  Receive Date: 20230616
  Receipt Date: 20230616
  Transmission Date: 20230722
  Serious: No
  Sender: FDA-Public Use
  Company Number: None

PATIENT
  Sex: Female

DRUGS (1)
  1. ORENCIA [Suspect]
     Active Substance: ABATACEPT
     Indication: Rheumatoid arthritis
     Dosage: INJECT 1 SYRINGE UNDER THE SKIN (SUBCUTANEOUS INJECTION) EVERY WEEK, REFRIGERATE.  ALLOW TO WARM TO
     Route: 058
     Dates: start: 20230301

REACTIONS (6)
  - Surgery [None]
  - Fatigue [None]
  - Drug ineffective [None]
  - Loss of personal independence in daily activities [None]
  - Therapy interrupted [None]
  - Pain [None]
